FAERS Safety Report 24574473 (Version 1)
Quarter: 2024Q4

REPORT INFORMATION
  Report Type: Spontaneous
  Country: FR (occurrence: FR)
  Receive Date: 20241104
  Receipt Date: 20241104
  Transmission Date: 20250115
  Serious: Yes (Other)
  Sender: AUROBINDO
  Company Number: FR-AFSSAPS-AM2024000851

PATIENT
  Age: 55 Year
  Sex: Female
  Weight: 72 kg

DRUGS (2)
  1. DIAZEPAM [Suspect]
     Active Substance: DIAZEPAM
     Indication: Sciatica
     Dosage: 1 DOSAGE FORM, ONCE A DAY
     Route: 048
     Dates: start: 20240919, end: 20240930
  2. TRAMADOL [Suspect]
     Active Substance: TRAMADOL
     Indication: Sciatica
     Dosage: UNK
     Route: 048
     Dates: start: 20240902, end: 20240930

REACTIONS (4)
  - Somnolence [Recovered/Resolved]
  - Muscular weakness [Recovered/Resolved]
  - Rash [Recovered/Resolved]
  - Gastrointestinal disorder [Recovered/Resolved]

NARRATIVE: CASE EVENT DATE: 20240928
